FAERS Safety Report 12326430 (Version 2)
Quarter: 2016Q2

REPORT INFORMATION
  Report Type: Spontaneous
  Country: GT (occurrence: GT)
  Receive Date: 20160503
  Receipt Date: 20160513
  Transmission Date: 20160815
  Serious: Yes (Hospitalization, Other)
  Sender: FDA-Public Use
  Company Number: PHHY2016GT059771

PATIENT
  Age: 34 Year
  Sex: Female

DRUGS (1)
  1. SANDOSTATIN LAR DEPOT [Suspect]
     Active Substance: OCTREOTIDE ACETATE
     Indication: PITUITARY TUMOUR BENIGN
     Dosage: UNK, QMO
     Route: 065

REACTIONS (4)
  - Abscess neck [Unknown]
  - Malaise [Unknown]
  - Diabetes mellitus [Unknown]
  - Inflammation [Unknown]
